FAERS Safety Report 25234967 (Version 1)
Quarter: 2025Q2

REPORT INFORMATION
  Report Type: Spontaneous
  Country: US (occurrence: None)
  Receive Date: 20250423
  Receipt Date: 20250423
  Transmission Date: 20250717
  Serious: Yes (Other)
  Sender: FDA-CTU
  Company Number: None

PATIENT
  Age: 51 Year
  Sex: Female
  Weight: 90 kg

DRUGS (2)
  1. ARESTIN [Suspect]
     Active Substance: MINOCYCLINE HYDROCHLORIDE
     Route: 050
     Dates: start: 20250312, end: 20250312
  2. VITAMINS [Concomitant]
     Active Substance: VITAMINS

REACTIONS (11)
  - Oral pain [None]
  - Mouth swelling [None]
  - Wrong technique in product usage process [None]
  - Foreign body reaction [None]
  - Toothache [None]
  - Palatal swelling [None]
  - Gingival recession [None]
  - Gingivitis [None]
  - Granuloma [None]
  - Dental restoration failure [None]
  - Post procedural complication [None]

NARRATIVE: CASE EVENT DATE: 20250312
